FAERS Safety Report 8254736-5 (Version None)
Quarter: 2012Q2

REPORT INFORMATION
  Report Type: 
  Country: None (occurrence: None)
  Receive Date: 20120403
  Receipt Date: 20120321
  Transmission Date: 20120825
  Serious: Yes (Other)
  Sender: FDA-Public Use
  Company Number: PHHY2012CA026069

PATIENT
  Sex: Female

DRUGS (2)
  1. GLEEVEC [Suspect]
     Dosage: 300 MG, UNK
     Dates: start: 20080101
  2. GLEEVEC [Suspect]
     Indication: CHRONIC MYELOID LEUKAEMIA
     Dosage: 400 MG, UNK
     Dates: start: 20080101

REACTIONS (5)
  - PNEUMOTHORAX [None]
  - NEUTROPENIA [None]
  - DYSPNOEA [None]
  - PLEURAL EFFUSION [None]
  - FACE OEDEMA [None]
